FAERS Safety Report 15083459 (Version 1)
Quarter: 2018Q3

REPORT INFORMATION
  Report Type: Spontaneous
  Country: FR (occurrence: FR)
  Receive Date: 20180628
  Receipt Date: 20180628
  Transmission Date: 20181010
  Serious: Yes (Hospitalization)
  Sender: FDA-Public Use
  Company Number: FR-TEVA-2018-FR-914864

PATIENT
  Age: 43 Year
  Sex: Female

DRUGS (5)
  1. PAROXETINE (CHLORHYDRATE DE) ANHYDRE [Suspect]
     Active Substance: PAROXETINE
     Indication: SCHIZOPHRENIA
     Route: 048
     Dates: start: 201502
  2. SERESTA [Concomitant]
     Active Substance: OXAZEPAM
  3. NOZINAN 25 MG, COMPRIM? PELLICUL? S?CABLE [Suspect]
     Active Substance: LEVOMEPROMAZINE MALEATE
     Indication: SCHIZOPHRENIA
     Route: 048
     Dates: start: 2017
  4. THERALENE [Concomitant]
     Active Substance: TRIMEPRAZINE
  5. CLOZAPINE. [Suspect]
     Active Substance: CLOZAPINE
     Indication: SCHIZOPHRENIA
     Route: 048
     Dates: start: 201707

REACTIONS (3)
  - Status epilepticus [Recovered/Resolved]
  - Hyponatraemia [Recovered/Resolved]
  - Inappropriate antidiuretic hormone secretion [Recovered/Resolved]

NARRATIVE: CASE EVENT DATE: 20180418
